FAERS Safety Report 8951633 (Version 1)
Quarter: 2012Q4

REPORT INFORMATION
  Report Type: 
  Country: US (occurrence: US)
  Receive Date: 20121204
  Receipt Date: 20121204
  Transmission Date: 20130627
  Serious: No
  Sender: FDA-Public Use
  Company Number: US-ASTRAZENECA-2012SE88268

PATIENT
  Sex: Female

DRUGS (1)
  1. NEXIUM [Suspect]
     Indication: GASTROOESOPHAGEAL REFLUX DISEASE
     Dosage: UNKNOWN DOSE, DAILY
     Route: 048
     Dates: start: 201210

REACTIONS (4)
  - Gastrooesophageal reflux disease [Unknown]
  - Gastric pH decreased [Unknown]
  - Abdominal pain upper [Unknown]
  - Drug ineffective [Unknown]
